FAERS Safety Report 6638720-0 (Version None)
Quarter: 2010Q1

REPORT INFORMATION
  Report Type: 
  Country: None (occurrence: None)
  Receive Date: 20100317
  Receipt Date: 20100309
  Transmission Date: 20100710
  Serious: Yes (Death, Hospitalization, Other)
  Sender: FDA-Public Use
  Company Number: GB-AMGEN-QUU390268

PATIENT
  Sex: Female

DRUGS (2)
  1. ARANESP [Suspect]
     Indication: DIALYSIS
     Dates: start: 20030731, end: 20100201
  2. MYCOPHENOLATE MOFETIL [Concomitant]
     Dates: start: 20090317, end: 20090821

REACTIONS (7)
  - APLASIA PURE RED CELL [None]
  - CYTOMEGALOVIRUS INFECTION [None]
  - DEATH [None]
  - DRUG INEFFECTIVE [None]
  - HAEMOGLOBIN DECREASED [None]
  - RETICULOCYTE COUNT DECREASED [None]
  - TRANSPLANT FAILURE [None]
